FAERS Safety Report 24714221 (Version 4)
Quarter: 2025Q3

REPORT INFORMATION
  Report Type: Report from Study
  Country: CN (occurrence: CN)
  Receive Date: 20241209
  Receipt Date: 20250810
  Transmission Date: 20251021
  Serious: Yes (Hospitalization)
  Sender: ALEXION PHARMACEUTICALS
  Company Number: CN-AstraZeneca-2024A099851

PATIENT
  Age: 17 Year
  Sex: Male

DRUGS (6)
  1. SELUMETINIB [Suspect]
     Active Substance: SELUMETINIB
     Indication: Neurofibromatosis
     Dosage: 35 MILLIGRAM, BID
     Dates: start: 20240412, end: 20240423
  2. SELUMETINIB [Suspect]
     Active Substance: SELUMETINIB
     Dosage: UNK MILLIGRAM, BID
     Dates: start: 20240424, end: 20240429
  3. LEVOCETIRIZINE HYDROCHLORIDE [Concomitant]
     Active Substance: LEVOCETIRIZINE HYDROCHLORIDE
     Dosage: UNK MILLIGRAM, QD
     Route: 065
     Dates: start: 20240424, end: 20240429
  4. HYDROCORTISONE BUTYRATE [Concomitant]
     Active Substance: HYDROCORTISONE BUTYRATE
     Dosage: UNK, GRAM, BID
     Route: 065
     Dates: start: 20240424, end: 20240614
  5. CEFIXIME [Concomitant]
     Active Substance: CEFIXIME
     Dosage: UNK, GRAM, BID
     Route: 065
     Dates: start: 20240424, end: 20240429
  6. LORATADINE [Concomitant]
     Active Substance: LORATADINE
     Dosage: UNK, MILLIGRAM, QD
     Route: 065
     Dates: start: 20240421, end: 20240423

REACTIONS (1)
  - Drug eruption [Recovered/Resolved]

NARRATIVE: CASE EVENT DATE: 20240421
